FAERS Safety Report 10227061 (Version 2)
Quarter: 2014Q3

REPORT INFORMATION
  Report Type: Spontaneous
  Country: US (occurrence: US)
  Receive Date: 20140610
  Receipt Date: 20140717
  Transmission Date: 20150326
  Serious: Yes (Hospitalization)
  Sender: FDA-Public Use
  Company Number: US-SHIRE-US201402625

PATIENT
  Sex: Female

DRUGS (2)
  1. CINRYZE [Suspect]
     Active Substance: HUMAN C1-ESTERASE INHIBITOR
     Indication: HEREDITARY ANGIOEDEMA
     Dosage: 1000UNITS, OTHER (EVERY 3 DAYS)
     Route: 042
     Dates: start: 20140226
  2. CINRYZE [Suspect]
     Active Substance: HUMAN C1-ESTERASE INHIBITOR
     Indication: PROPHYLAXIS

REACTIONS (6)
  - Thrombosis [Unknown]
  - Infusion related reaction [Not Recovered/Not Resolved]
  - Device related infection [Unknown]
  - Migraine [Not Recovered/Not Resolved]
  - Sepsis [Unknown]
  - Chest discomfort [Not Recovered/Not Resolved]
